FAERS Safety Report 4884188-4 (Version None)
Quarter: 2005Q4

REPORT INFORMATION
  Report Type: 
  Country: None (occurrence: None)
  Receive Date: 20051201
  Receipt Date: 20050908
  Transmission Date: 20060501
  Serious: No
  Sender: FDA-Public Use
  Company Number: 2005PV001930

PATIENT
  Age: 42 Year
  Sex: Female
  Weight: 91.6266 kg

DRUGS (3)
  1. BYETTA [Suspect]
     Indication: METABOLIC DISORDER
     Dosage: 5 MCG; BID; SC
     Route: 058
     Dates: start: 20050803
  2. SYNTHROID [Concomitant]
  3. METFORMIN [Concomitant]

REACTIONS (2)
  - HYPERHIDROSIS [None]
  - WEIGHT DECREASED [None]
